FAERS Safety Report 21519229 (Version 2)
Quarter: 2022Q4

REPORT INFORMATION
  Report Type: Report from Study
  Country: US (occurrence: US)
  Receive Date: 20221028
  Receipt Date: 20221123
  Transmission Date: 20230112
  Serious: Yes (Other)
  Sender: FDA-Public Use
  Company Number: US-ABBVIE-4158781

PATIENT
  Age: 57 Year
  Sex: Female

DRUGS (2)
  1. SKYRIZI [Suspect]
     Active Substance: RISANKIZUMAB-RZAA
     Indication: Psoriasis
     Dosage: FORM STRENGTH: 150 MG?WEEK 0
     Route: 058
     Dates: start: 20220908, end: 20220908
  2. SKYRIZI [Suspect]
     Active Substance: RISANKIZUMAB-RZAA
     Indication: Psoriasis
     Dosage: WEEK 4
     Route: 058
     Dates: start: 20221007

REACTIONS (13)
  - Joint arthroplasty [Unknown]
  - Myalgia [Recovering/Resolving]
  - Osteotomy [Unknown]
  - Cough [Not Recovered/Not Resolved]
  - Chills [Recovering/Resolving]
  - Psoriasis [Recovering/Resolving]
  - Headache [Unknown]
  - Incision site vesicles [Unknown]
  - Mobility decreased [Unknown]
  - Post procedural complication [Unknown]
  - Feeling cold [Recovering/Resolving]
  - Localised infection [Unknown]
  - Skin maceration [Unknown]

NARRATIVE: CASE EVENT DATE: 20220901
